FAERS Safety Report 26006919 (Version 1)
Quarter: 2025Q4

REPORT INFORMATION
  Report Type: Spontaneous
  Country: BR (occurrence: BR)
  Receive Date: 20251106
  Receipt Date: 20251106
  Transmission Date: 20260117
  Serious: Yes (Hospitalization)
  Sender: PFIZER
  Company Number: BR-PFIZER INC-PV202500130777

PATIENT
  Age: 36 Year
  Sex: Female

DRUGS (2)
  1. TALIGLUCERASE ALFA [Suspect]
     Active Substance: TALIGLUCERASE ALFA
     Indication: Gaucher^s disease
     Dosage: 17 IU/KG EVERY 15 DAYS
     Dates: start: 202501
  2. TALIGLUCERASE ALFA [Suspect]
     Active Substance: TALIGLUCERASE ALFA
     Dosage: 17 IU/KG EVERY 15 DAYS
     Dates: start: 20250208

REACTIONS (2)
  - Uterine pain [Unknown]
  - Fallopian tube enlargement [Unknown]

NARRATIVE: CASE EVENT DATE: 20250205
